FAERS Safety Report 25249775 (Version 1)
Quarter: 2025Q2

REPORT INFORMATION
  Report Type: Spontaneous
  Country: US (occurrence: US)
  Receive Date: 20250429
  Receipt Date: 20250429
  Transmission Date: 20250716
  Serious: Yes (Hospitalization)
  Sender: MERCK SHARP & DOHME LLC
  Company Number: US-009507513-2279465

PATIENT
  Age: 79 Year
  Sex: Female

DRUGS (1)
  1. PEMBROLIZUMAB [Suspect]
     Active Substance: PEMBROLIZUMAB
     Indication: Vulval cancer
     Route: 065

REACTIONS (3)
  - Atrioventricular block complete [Recovered/Resolved]
  - Immune-mediated myocarditis [Unknown]
  - Immune-mediated myositis [Unknown]
